FAERS Safety Report 5897782-9 (Version None)
Quarter: 2008Q3

REPORT INFORMATION
  Report Type: 
  Country: None (occurrence: None)
  Receive Date: 20080925
  Receipt Date: 20080925
  Transmission Date: 20090109
  Serious: Yes (Hospitalization)
  Sender: FDA-Public Use
  Company Number: PHEH1996US07267

PATIENT
  Sex: Male
  Weight: 67 kg

DRUGS (10)
  1. SANDIMMUNE [Suspect]
     Route: 048
     Dates: start: 19950622
  2. PREDNISONE [Concomitant]
  3. PENTAMIDNE INHALER (PENTAMIDINE) [Concomitant]
  4. GENTAMICIN SULFATE [Concomitant]
  5. COMPAZINE [Concomitant]
  6. ATIVAN [Concomitant]
  7. INSULIN [Concomitant]
  8. TPN [Concomitant]
  9. FAT EMULSIONS- 20% (FAT EMULSIONS) [Concomitant]
  10. ATARAX [Concomitant]

REACTIONS (1)
  - ABSCESS [None]
